FAERS Safety Report 5800955-4 (Version None)
Quarter: 2008Q3

REPORT INFORMATION
  Report Type: 
  Country: None (occurrence: None)
  Receive Date: 20080703
  Receipt Date: 20080628
  Transmission Date: 20090109
  Serious: Yes (Other)
  Sender: FDA-Public Use
  Company Number: US-BOEHRINGER INGELHEIM GMBH, GERMANY-2008-BP-10113BP

PATIENT
  Sex: Male

DRUGS (2)
  1. ZANTAC 75 [Suspect]
  2. ADVIL [Concomitant]

REACTIONS (2)
  - LIVER INJURY [None]
  - RENAL FAILURE [None]
